FAERS Safety Report 5496827-8 (Version None)
Quarter: 2007Q4

REPORT INFORMATION
  Report Type: 
  Country: None (occurrence: None)
  Receive Date: 20071025
  Receipt Date: 20070822
  Transmission Date: 20080405
  Serious: No
  Sender: FDA-Public Use
  Company Number: A0674725A

PATIENT
  Sex: Female

DRUGS (6)
  1. ADVAIR DISKUS 100/50 [Suspect]
     Indication: CHRONIC OBSTRUCTIVE PULMONARY DISEASE
     Dosage: 1PUFF TWICE PER DAY
     Route: 055
     Dates: start: 20070618, end: 20070625
  2. PULMICORT [Concomitant]
  3. ALBUTEROL [Concomitant]
  4. FLUTICASONE PROPIONATE [Concomitant]
  5. NORVASC [Concomitant]
  6. LISINOPRIL [Concomitant]

REACTIONS (1)
  - OEDEMA PERIPHERAL [None]
